FAERS Safety Report 5801400-5 (Version None)
Quarter: 2008Q3

REPORT INFORMATION
  Report Type: 
  Country: None (occurrence: None)
  Receive Date: 20080703
  Receipt Date: 20080703
  Transmission Date: 20090109
  Serious: Yes (Hospitalization)
  Sender: FDA-Public Use
  Company Number: None

PATIENT
  Sex: Female
  Weight: 56.4 kg

DRUGS (4)
  1. BEVACIZUMAB (RHUMAB VEGF) [Suspect]
     Dosage: 848 MG
     Dates: end: 20070919
  2. FLUOROURACIL [Suspect]
     Dosage: 11648 MG
     Dates: end: 20070919
  3. LEUCOVORIN CALCIUM [Suspect]
     Dosage: 1920 MG
     Dates: end: 20070917
  4. ELOXATIN [Suspect]
     Dosage: 344 MG
     Dates: end: 20070917

REACTIONS (6)
  - ABDOMINAL PAIN [None]
  - COLITIS ISCHAEMIC [None]
  - DEFAECATION URGENCY [None]
  - NAUSEA [None]
  - RECTAL HAEMORRHAGE [None]
  - VOMITING [None]
